FAERS Safety Report 20434975 (Version 1)
Quarter: 2022Q1

REPORT INFORMATION
  Report Type: Spontaneous
  Country: BG (occurrence: BG)
  Receive Date: 20220206
  Receipt Date: 20220206
  Transmission Date: 20220424
  Serious: Yes (Death)
  Sender: FDA-Public Use
  Company Number: BG-NOVARTISPH-NVSC2022BG025408

PATIENT
  Age: 82 Year
  Sex: Male

DRUGS (1)
  1. ENTRESTO [Suspect]
     Active Substance: SACUBITRIL\VALSARTAN
     Indication: Cardiac failure
     Dosage: 24/26 MG, BID
     Route: 048
     Dates: start: 201812

REACTIONS (1)
  - Death [Fatal]
